FAERS Safety Report 7386071-1 (Version None)
Quarter: 2011Q1

REPORT INFORMATION
  Report Type: 
  Country: None (occurrence: None)
  Receive Date: 20110329
  Receipt Date: 20110329
  Transmission Date: 20110831
  Serious: Yes (Other)
  Sender: FDA-Public Use
  Company Number: None

PATIENT
  Sex: Female
  Weight: 48.5349 kg

DRUGS (1)
  1. PRAVASTATIN SODIUM [Suspect]
     Indication: CAROTID ARTERY OCCLUSION
     Dosage: 1 TABLET DAILY MOUTH
     Route: 048
     Dates: start: 20110106, end: 20110207

REACTIONS (4)
  - PAIN IN EXTREMITY [None]
  - DECREASED APPETITE [None]
  - DYSSTASIA [None]
  - OEDEMA PERIPHERAL [None]
